FAERS Safety Report 6740609-3 (Version None)
Quarter: 2010Q2

REPORT INFORMATION
  Report Type: 
  Country: None (occurrence: None)
  Receive Date: 20100525
  Receipt Date: 20100517
  Transmission Date: 20101027
  Serious: Yes (Other)
  Sender: FDA-Public Use
  Company Number: US-ROCHE-622194

PATIENT
  Sex: Female

DRUGS (2)
  1. ACCUTANE [Suspect]
     Route: 065
     Dates: start: 20010911, end: 20020201
  2. SOTRET [Suspect]
     Route: 048
     Dates: start: 20070501, end: 20070901

REACTIONS (40)
  - ABDOMINAL ADHESIONS [None]
  - ANAL PRURITUS [None]
  - ANORECTAL DISCOMFORT [None]
  - ANXIETY [None]
  - APPETITE DISORDER [None]
  - ASTHENIA [None]
  - BACK PAIN [None]
  - COLITIS [None]
  - COLITIS ULCERATIVE [None]
  - CROHN'S DISEASE [None]
  - DEPRESSED MOOD [None]
  - DEPRESSION [None]
  - DIZZINESS [None]
  - DRY SKIN [None]
  - DYSPEPSIA [None]
  - ENDOMETRIOSIS [None]
  - ERYTHEMA [None]
  - FATIGUE [None]
  - FLANK PAIN [None]
  - GASTROOESOPHAGEAL REFLUX DISEASE [None]
  - HAEMATOCRIT DECREASED [None]
  - HAEMOGLOBIN DECREASED [None]
  - HAEMORRHOIDS [None]
  - INFLAMMATORY BOWEL DISEASE [None]
  - INSOMNIA [None]
  - IRON DEFICIENCY ANAEMIA [None]
  - IRRITABILITY [None]
  - LIP BLISTER [None]
  - LIP DRY [None]
  - PELVIC ADHESIONS [None]
  - PELVIC PAIN [None]
  - PROCTITIS [None]
  - RASH PAPULAR [None]
  - RECTAL HAEMORRHAGE [None]
  - RED BLOOD CELL COUNT DECREASED [None]
  - RESTLESSNESS [None]
  - SLEEP APNOEA SYNDROME [None]
  - SLEEP DISORDER [None]
  - URINARY TRACT INFECTION [None]
  - WEIGHT DECREASED [None]
